FAERS Safety Report 6765647-6 (Version None)
Quarter: 2010Q2

REPORT INFORMATION
  Report Type: 
  Country: None (occurrence: None)
  Receive Date: 20100611
  Receipt Date: 20100528
  Transmission Date: 20101027
  Serious: No
  Sender: FDA-Public Use
  Company Number: US-B.I. PHARMACEUTICALS,INC./RIDGEFIELD-2010-BP-06154BP

PATIENT
  Sex: Female

DRUGS (3)
  1. SPIRIVA [Suspect]
     Indication: CHRONIC OBSTRUCTIVE PULMONARY DISEASE
     Dosage: 18 MCG
     Route: 055
     Dates: start: 20091001
  2. SYNTHROID [Concomitant]
     Indication: HYPOTHYROIDISM
     Dosage: 0.75 MG
     Route: 048
     Dates: start: 20060101
  3. XANAX [Concomitant]
     Indication: NIGHTMARE
     Dosage: 0.5 MG
     Route: 048
     Dates: start: 20080101

REACTIONS (4)
  - CATARACT [None]
  - HALLUCINATION [None]
  - PARANOIA [None]
  - RETINAL DISORDER [None]
